FAERS Safety Report 7271015-3 (Version None)
Quarter: 2011Q1

REPORT INFORMATION
  Report Type: 
  Country: None (occurrence: None)
  Receive Date: 20110202
  Receipt Date: 20110122
  Transmission Date: 20110831
  Serious: Yes (Other)
  Sender: FDA-Public Use
  Company Number: CA-ELI_LILLY_AND_COMPANY-CA201101005740

PATIENT
  Age: 81 Year
  Sex: Female

DRUGS (8)
  1. METFORMIN [Concomitant]
  2. FORTEO [Suspect]
     Indication: OSTEOPOROSIS
     Dosage: 20 UG, DAILY (1/D)
     Route: 058
     Dates: start: 20091214
  3. CRESTOR [Concomitant]
  4. DOCUSATE SODIUM [Concomitant]
  5. CALCIUM [Concomitant]
  6. TYLENOL                                 /SCH/ [Concomitant]
  7. CELEBREX [Concomitant]
  8. ALPRAZOLAM [Concomitant]

REACTIONS (3)
  - HIP FRACTURE [None]
  - FALL [None]
  - BRONCHITIS [None]
